FAERS Safety Report 12677896 (Version 1)
Quarter: 2016Q3

REPORT INFORMATION
  Report Type: Spontaneous
  Country: US (occurrence: US)
  Receive Date: 20160823
  Receipt Date: 20160823
  Transmission Date: 20161109
  Serious: No
  Sender: FDA-Public Use
  Company Number: US-TARO-2016TAR00138

PATIENT
  Age: 67 Year
  Sex: Female
  Weight: 54.42 kg

DRUGS (8)
  1. WARFARIN SODIUM TABLETS USP 5MG [Suspect]
     Active Substance: WARFARIN SODIUM
     Dosage: 1 TABLETS, ONCE
     Route: 048
     Dates: start: 20160208, end: 20160208
  2. POTASSIUM [Concomitant]
     Active Substance: POTASSIUM
     Dosage: 22 MG, 1X/DAY
  3. NATURE-THROID [Concomitant]
     Active Substance: THYROID, PORCINE
     Dosage: 65 MG, 1X/DAY
  4. WARFARIN SODIUM TABLETS USP 5MG [Suspect]
     Active Substance: WARFARIN SODIUM
     Indication: PULMONARY THROMBOSIS
     Dosage: 1 TABLETS, ONCE
     Route: 048
     Dates: start: 20160205, end: 20160205
  5. WARFARIN SODIUM TABLETS USP 5MG [Suspect]
     Active Substance: WARFARIN SODIUM
     Dosage: 1.5 TABLETS, 1X/DAY
     Route: 048
     Dates: start: 20160206, end: 20160207
  6. MAGNESIUM [Concomitant]
     Active Substance: MAGNESIUM
     Dosage: 50 MG, 1X/DAY
  7. WARFARIN SODIUM TABLETS USP 5MG [Suspect]
     Active Substance: WARFARIN SODIUM
     Dosage: 1.5 TABLETS, ONCE
     Route: 048
     Dates: start: 20160209, end: 20160209
  8. CALCIUM [Concomitant]
     Active Substance: CALCIUM
     Dosage: 110 MG, 1X/DAY

REACTIONS (1)
  - Pruritus [Recovered/Resolved]

NARRATIVE: CASE EVENT DATE: 20160209
